FAERS Safety Report 5991329-4 (Version None)
Quarter: 2008Q4

REPORT INFORMATION
  Report Type: 
  Country: None (occurrence: None)
  Receive Date: 20081202
  Receipt Date: 20080204
  Transmission Date: 20090506
  Serious: Yes (Other)
  Sender: FDA-Public Use
  Company Number: WAES 0802USA00991

PATIENT
  Age: 52 Year
  Sex: Female
  Weight: 68.9467 kg

DRUGS (5)
  1. FOSAMAX [Suspect]
     Indication: OSTEOPOROSIS
     Dosage: PO
     Route: 048
     Dates: start: 19990601, end: 20060601
  2. FOSAMAX [Suspect]
     Indication: OSTEOPOROSIS
     Dosage: 10 MG/PO
     Route: 047
     Dates: start: 19990624
  3. FOSAMAX [Suspect]
     Indication: OSTEOPOROSIS
     Dosage: 70 MG/PO
     Route: 048
     Dates: start: 20021105
  4. BONIVA [Concomitant]
  5. SYNTHROID [Concomitant]

REACTIONS (9)
  - CERUMEN IMPACTION [None]
  - CYSTITIS [None]
  - EAR DISCOMFORT [None]
  - LABYRINTHITIS [None]
  - LACRIMATION INCREASED [None]
  - MECHANICAL COMPLICATION OF IMPLANT [None]
  - ONYCHOMYCOSIS [None]
  - OSTEONECROSIS [None]
  - VISION BLURRED [None]
